FAERS Safety Report 23726829 (Version 1)
Quarter: 2024Q2

REPORT INFORMATION
  Report Type: Spontaneous
  Country: CA (occurrence: CA)
  Receive Date: 20240410
  Receipt Date: 20240410
  Transmission Date: 20240716
  Serious: Yes (Other)
  Sender: FDA-Public Use
  Company Number: CA-TAKEDA-2024TUS031810

PATIENT
  Sex: Female
  Weight: 45 kg

DRUGS (2)
  1. ENTYVIO [Suspect]
     Active Substance: VEDOLIZUMAB
     Indication: Crohn^s disease
     Dosage: UNK
     Route: 042
  2. CLONAZEPAM [Concomitant]
     Active Substance: CLONAZEPAM
     Dosage: UNK

REACTIONS (8)
  - Mental impairment [Unknown]
  - Neoplasm malignant [Unknown]
  - Visual impairment [Unknown]
  - Illness [Unknown]
  - Weight decreased [Unknown]
  - Tooth loss [Unknown]
  - Scar [Unknown]
  - Off label use [Unknown]
